FAERS Safety Report 9419648 (Version 1)
Quarter: 2013Q3

REPORT INFORMATION
  Report Type: Spontaneous
  Country: US (occurrence: US)
  Receive Date: 20130725
  Receipt Date: 20130725
  Transmission Date: 20140515
  Serious: Yes (Other)
  Sender: FDA-Public Use
  Company Number: US-ABBOTT-13P-163-1122228-00

PATIENT
  Sex: Male
  Weight: 68.1 kg

DRUGS (3)
  1. SIMCOR 500/40 [Suspect]
     Indication: BLOOD CHOLESTEROL INCREASED
     Dates: start: 201201
  2. SIMCOR 500/40 [Suspect]
  3. UNKNOWN GENERIC MEDICATION [Suspect]
     Indication: BLOOD CHOLESTEROL INCREASED

REACTIONS (6)
  - Metastatic neoplasm [Not Recovered/Not Resolved]
  - Diarrhoea [Recovered/Resolved]
  - Flushing [Recovered/Resolved]
  - Vomiting [Recovered/Resolved]
  - Headache [Recovered/Resolved]
  - Palpitations [Recovered/Resolved]
